FAERS Safety Report 21021632 (Version 1)
Quarter: 2022Q2

REPORT INFORMATION
  Report Type: Spontaneous
  Country: US (occurrence: US)
  Receive Date: 20220629
  Receipt Date: 20220629
  Transmission Date: 20220721
  Serious: No
  Sender: FDA-Public Use
  Company Number: US-JNJFOC-20220637549

PATIENT
  Age: 39 Year
  Sex: Female
  Weight: 59.020 kg

DRUGS (10)
  1. STELARA [Suspect]
     Active Substance: USTEKINUMAB
     Indication: Colitis ulcerative
     Route: 058
     Dates: start: 202107
  2. STELARA [Suspect]
     Active Substance: USTEKINUMAB
  3. COPAXONE [Concomitant]
     Active Substance: GLATIRAMER ACETATE
     Indication: Multiple sclerosis
  4. SYNTHROID [Concomitant]
     Active Substance: LEVOTHYROXINE SODIUM
     Indication: Autoimmune thyroiditis
  5. ZOLOFT [Concomitant]
     Active Substance: SERTRALINE HYDROCHLORIDE
  6. LOSARTAN [Concomitant]
     Active Substance: LOSARTAN
  7. RIZATRIPTAN [Concomitant]
     Active Substance: RIZATRIPTAN
     Indication: Migraine
  8. VITAMIN D3 [Concomitant]
     Active Substance: CHOLECALCIFEROL
  9. METHYLPHENIDATE [Concomitant]
     Active Substance: METHYLPHENIDATE
  10. XANAX [Concomitant]
     Active Substance: ALPRAZOLAM

REACTIONS (3)
  - Injection site swelling [Unknown]
  - Injection site warmth [Unknown]
  - Pruritus [Unknown]

NARRATIVE: CASE EVENT DATE: 20220601
